FAERS Safety Report 13458492 (Version 1)
Quarter: 2017Q2

REPORT INFORMATION
  Report Type: Spontaneous
  Country: CH (occurrence: CH)
  Receive Date: 20170419
  Receipt Date: 20170419
  Transmission Date: 20170830
  Serious: Yes (Other)
  Sender: FDA-Public Use
  Company Number: CH-AMGEN-CHESP2017056925

PATIENT
  Age: 40 Year
  Sex: Female
  Weight: 76 kg

DRUGS (30)
  1. DOXORUBICINE [Suspect]
     Active Substance: DOXORUBICIN
     Indication: HODGKIN^S DISEASE NODULAR SCLEROSIS
     Dosage: 25 MG/M2, UNK (CYCLE 1)
     Route: 065
     Dates: start: 20160729, end: 20160812
  2. VELBE [Suspect]
     Active Substance: VINBLASTINE SULFATE
     Dosage: 6 MG/M2, UNK
     Route: 065
     Dates: start: 20160923, end: 20161017
  3. DOXORUBICINE [Suspect]
     Active Substance: DOXORUBICIN
     Dosage: 25 MG/M2, UNK (CUT OFF)
     Route: 065
     Dates: end: 20170106
  4. DACIN [Suspect]
     Active Substance: DACARBAZINE
     Dosage: 375 MG/M2, UNK  (CYCLE 3)
     Route: 065
     Dates: start: 20160923, end: 20160923
  5. ZOFRAN [Suspect]
     Active Substance: ONDANSETRON HYDROCHLORIDE
     Dosage: 6 MG/M2, UNK (CYCLE 2)
     Route: 065
     Dates: start: 20160826, end: 20160909
  6. EMEND [Suspect]
     Active Substance: APREPITANT
     Indication: PROPHYLAXIS OF NAUSEA AND VOMITING
     Dosage: 125 MG, UNK
     Route: 065
     Dates: start: 20160729, end: 20160729
  7. EMEND [Suspect]
     Active Substance: APREPITANT
     Dosage: 80 MG, UNK
     Route: 065
     Dates: start: 20160730, end: 20160730
  8. BLEOMYCIN [Suspect]
     Active Substance: BLEOMYCIN SULFATE
     Dosage: 10000 UNITS/M2
     Route: 065
     Dates: end: 20170106
  9. SOLU-MEDROL [Suspect]
     Active Substance: METHYLPREDNISOLONE SODIUM SUCCINATE
     Dosage: UNK, CYCLE 4
     Route: 065
     Dates: start: 20161216, end: 20170106
  10. EUTHYROX [Concomitant]
     Active Substance: LEVOTHYROXINE SODIUM
     Indication: HYPOTHYROIDISM
     Dosage: UNK
     Dates: start: 20160624
  11. DOXORUBICINE [Suspect]
     Active Substance: DOXORUBICIN
     Dosage: 25 MG/M2, UNK (CYCLE 2)
     Route: 065
     Dates: start: 20160826, end: 20160909
  12. VELBE [Suspect]
     Active Substance: VINBLASTINE SULFATE
     Dosage: 6 MG/M2, UNK
     Route: 065
     Dates: end: 20170106
  13. DACIN [Suspect]
     Active Substance: DACARBAZINE
     Dosage: 375 MG/M2, UNK  (CYCLE 2)
     Route: 065
     Dates: start: 20160826, end: 20160909
  14. ZOFRAN [Suspect]
     Active Substance: ONDANSETRON HYDROCHLORIDE
     Dosage: 6 MG/M2, UNK (CYCLE 3)
     Route: 065
     Dates: start: 20160923, end: 20161017
  15. NEUPOGEN [Suspect]
     Active Substance: FILGRASTIM
     Indication: AGRANULOCYTOSIS
     Dosage: UNK (SINGLE INJECTION)
     Route: 065
     Dates: start: 201608, end: 201608
  16. ZOFRAN [Suspect]
     Active Substance: ONDANSETRON HYDROCHLORIDE
     Indication: PROPHYLAXIS OF NAUSEA AND VOMITING
     Dosage: 6 MG/M2, UNK (CYCLE 1)
     Route: 065
     Dates: start: 20160729, end: 20160812
  17. SOLU-MEDROL [Suspect]
     Active Substance: METHYLPREDNISOLONE SODIUM SUCCINATE
     Dosage: UNK, CYCLE 2
     Route: 065
     Dates: start: 20160826, end: 20160909
  18. GYNEFAM XL [Concomitant]
     Indication: NUTRITIONAL SUPPLEMENTATION
     Dosage: UNK
     Dates: start: 2016, end: 2016
  19. VITAMIN B12 [Concomitant]
     Active Substance: CYANOCOBALAMIN
     Indication: ANAEMIA PROPHYLAXIS
     Dosage: UNK
     Dates: start: 201609, end: 201611
  20. BLEOMYCIN [Suspect]
     Active Substance: BLEOMYCIN SULFATE
     Dosage: 10000 UNITS/M2 , (CYCLE 2)
     Route: 065
     Dates: start: 20160923, end: 20161017
  21. VELBE [Suspect]
     Active Substance: VINBLASTINE SULFATE
     Indication: HODGKIN^S DISEASE NODULAR SCLEROSIS
     Dosage: 6 MG/M2, UNK (CYCLE 1)
     Route: 065
     Dates: start: 20160729, end: 20160812
  22. FOLIC ACID. [Concomitant]
     Active Substance: FOLIC ACID
     Indication: ANAEMIA PROPHYLAXIS
     Dosage: UNK
     Dates: start: 201609, end: 201611
  23. BLEOMYCIN [Suspect]
     Active Substance: BLEOMYCIN SULFATE
     Dosage: 10000 UNITS/M2, (CYCLE 2)
     Route: 065
     Dates: start: 20160826, end: 20160909
  24. VELBE [Suspect]
     Active Substance: VINBLASTINE SULFATE
     Dosage: 6 MG/M2, UNK (CYCLE 2)
     Route: 065
     Dates: start: 20160826, end: 20160909
  25. DACIN [Suspect]
     Active Substance: DACARBAZINE
     Indication: HODGKIN^S DISEASE NODULAR SCLEROSIS
     Dosage: 375 MG/M2, UNK  (CYCLE 1)
     Route: 065
     Dates: start: 20160729, end: 20160812
  26. SOLU-MEDROL [Suspect]
     Active Substance: METHYLPREDNISOLONE SODIUM SUCCINATE
     Dosage: UNK, CYCLE 3
     Route: 065
     Dates: start: 20160923, end: 20161017
  27. DOXORUBICINE [Suspect]
     Active Substance: DOXORUBICIN
     Dosage: 25 MG/M2, UNK (CYCLE 3)
     Route: 065
     Dates: start: 20160923, end: 20161017
  28. BLEOMYCIN [Suspect]
     Active Substance: BLEOMYCIN SULFATE
     Indication: HODGKIN^S DISEASE NODULAR SCLEROSIS
     Dosage: 10000 UNITS/M2 , (CYCLE 1)
     Route: 065
     Dates: start: 20160729, end: 20160812
  29. ZOFRAN [Suspect]
     Active Substance: ONDANSETRON HYDROCHLORIDE
     Dosage: 6 MG/M2, UNK (CYCLE 4)
     Route: 065
     Dates: start: 20161216, end: 20170106
  30. SOLU-MEDROL [Suspect]
     Active Substance: METHYLPREDNISOLONE SODIUM SUCCINATE
     Indication: PROPHYLAXIS OF NAUSEA AND VOMITING
     Dosage: UNK, CYCLE 1
     Route: 065
     Dates: start: 20160729, end: 20160812

REACTIONS (1)
  - Maternal exposure during pregnancy [Recovered/Resolved]

NARRATIVE: CASE EVENT DATE: 201608
